FAERS Safety Report 5476869-9 (Version None)
Quarter: 2007Q4

REPORT INFORMATION
  Report Type: 
  Country: None (occurrence: None)
  Receive Date: 20071002
  Receipt Date: 20070925
  Transmission Date: 20080405
  Serious: Yes (Death, Hospitalization)
  Sender: FDA-Public Use
  Company Number: 163-21880-07090203

PATIENT
  Age: 83 Year
  Sex: Male

DRUGS (2)
  1. REVLIMID [Suspect]
     Indication: CHRONIC LYMPHOCYTIC LEUKAEMIA
     Dosage: 25 MG, QOD X2 WEEKS, ORAL; 25 MG, QD X1 WEEK, ORAL
     Route: 048
     Dates: start: 20070717, end: 20070701
  2. REVLIMID [Suspect]
     Indication: CHRONIC LYMPHOCYTIC LEUKAEMIA
     Dosage: 25 MG, QOD X2 WEEKS, ORAL; 25 MG, QD X1 WEEK, ORAL
     Route: 048
     Dates: start: 20070701, end: 20070828

REACTIONS (4)
  - ASTHENIA [None]
  - DISEASE PROGRESSION [None]
  - FULL BLOOD COUNT DECREASED [None]
  - PNEUMONIA KLEBSIELLA [None]
